FAERS Safety Report 9271523 (Version 7)
Quarter: 2013Q4

REPORT INFORMATION
  Report Type: Report from Study
  Country: IT (occurrence: IT)
  Receive Date: 20130506
  Receipt Date: 20131025
  Transmission Date: 20140711
  Serious: Yes (Hospitalization, Other)
  Sender: FDA-Public Use
  Company Number: IT-PFIZER INC-2013105044

PATIENT
  Age: 69 Year
  Sex: Female
  Weight: 57 kg

DRUGS (3)
  1. CRIZOTINIB [Suspect]
     Indication: NON-SMALL CELL LUNG CANCER
     Dosage: 250 MG, CONTINUOUS TWICE DAILY
     Route: 048
     Dates: start: 20111215
  2. LOSARTAN [Concomitant]
     Indication: HYPERTENSION
     Dosage: UNK
     Dates: start: 2001
  3. CARDIOASPIRIN [Concomitant]
     Indication: CARDIOVASCULAR EVENT PROPHYLAXIS
     Dosage: UNK
     Dates: start: 2001

REACTIONS (1)
  - Abdominal abscess [Not Recovered/Not Resolved]
